FAERS Safety Report 5487957-5 (Version None)
Quarter: 2007Q4

REPORT INFORMATION
  Report Type: 
  Country: None (occurrence: None)
  Receive Date: 20071001
  Receipt Date: 20070821
  Transmission Date: 20080405
  Serious: Yes (Other)
  Sender: FDA-Public Use
  Company Number: 200711854BWH

PATIENT
  Sex: Female

DRUGS (1)
  1. CIPRO IV [Suspect]
     Indication: CYSTITIS
     Dosage: INTRAVENOUS
     Route: 042

REACTIONS (1)
  - BLOOD GLUCOSE ABNORMAL [None]
